FAERS Safety Report 9101854 (Version 1)
Quarter: 2013Q1

REPORT INFORMATION
  Report Type: Spontaneous
  Country: US (occurrence: US)
  Receive Date: 20130218
  Receipt Date: 20130218
  Transmission Date: 20140127
  Serious: No
  Sender: FDA-Public Use
  Company Number: US-PFIZER INC-2013053265

PATIENT
  Sex: Female

DRUGS (2)
  1. MEDROXYPROGESTERONE ACETATE [Suspect]
     Dosage: 2.5 MG, 2X/WEEK, ON WEDNESDAY AND SATURDAY
  2. ESTRADIOL [Concomitant]
     Dosage: 1 MG, UNK

REACTIONS (3)
  - Product quality issue [Unknown]
  - Pain in extremity [Unknown]
  - Personality change [Unknown]
